FAERS Safety Report 17842885 (Version 9)
Quarter: 2021Q2

REPORT INFORMATION
  Report Type: Report from Study
  Country: DE (occurrence: DE)
  Receive Date: 20200530
  Receipt Date: 20210427
  Transmission Date: 20210717
  Serious: Yes (Death, Hospitalization)
  Sender: FDA-Public Use
  Company Number: NVSC2020DE149577

PATIENT
  Sex: Female
  Weight: 62.4 kg

DRUGS (3)
  1. KISQALI [Suspect]
     Active Substance: RIBOCICLIB
     Indication: BREAST CANCER METASTATIC
     Dosage: 600 MG, QD (SCHEMA 21 DAYS INTAKE, 7 DAYS PAUSE)
     Route: 048
     Dates: start: 20190619, end: 20200319
  2. FULVESTRANT. [Suspect]
     Active Substance: FULVESTRANT
     Indication: BREAST CANCER METASTATIC
     Dosage: 250 MG, QD (MONTHLY)
     Route: 030
     Dates: start: 20190619, end: 20200303
  3. IBUPROFEN. [Suspect]
     Active Substance: IBUPROFEN
     Indication: PRODUCT USED FOR UNKNOWN INDICATION
     Dosage: UNK
     Route: 065

REACTIONS (12)
  - Dermatosis [Recovered/Resolved]
  - Abdominal pain [Unknown]
  - Blood bilirubin increased [Fatal]
  - Ascites [Not Recovered/Not Resolved]
  - Pain [Fatal]
  - Hepatic failure [Fatal]
  - Hyperchromic anaemia [Not Recovered/Not Resolved]
  - Alopecia [Recovered/Resolved]
  - Mucosal inflammation [Not Recovered/Not Resolved]
  - Liver disorder [Fatal]
  - Nausea [Fatal]
  - Carbohydrate antigen 15-3 increased [Not Recovered/Not Resolved]

NARRATIVE: CASE EVENT DATE: 20190619
